FAERS Safety Report 5654239-8 (Version None)
Quarter: 2008Q1

REPORT INFORMATION
  Report Type: 
  Country: None (occurrence: None)
  Receive Date: 20080305
  Receipt Date: 20080221
  Transmission Date: 20080703
  Serious: Yes (Hospitalization)
  Sender: FDA-Public Use
  Company Number: 163-20785-08021297

PATIENT
  Age: 71 Year
  Sex: Male
  Weight: 107 kg

DRUGS (8)
  1. THALOMID [Suspect]
     Indication: GLIOBLASTOMA MULTIFORME
     Dosage: 400 MG, QD, ORAL
     Route: 048
     Dates: start: 20071009
  2. TEMOZOLOMIDE [Suspect]
     Indication: GLIOBLASTOMA
     Dosage: 300 MG, QD, ORAL
     Route: 048
     Dates: start: 20071009
  3. ISOTRETINOIN [Suspect]
     Indication: GLIOBLASTOMA MULTIFORME
     Dosage: 80 MG, BID
     Dates: start: 20071009
  4. CELEBREX [Suspect]
     Indication: GLIOBLASTOMA MULTIFORME
     Dosage: 400 MG, BID, ORAL
     Route: 048
     Dates: start: 20071009
  5. DECADRON [Suspect]
     Indication: HEADACHE
     Dates: end: 20071001
  6. LASIX [Concomitant]
  7. POTASSIUM (POTASSIUM) [Concomitant]
  8. PRILOSEC [Concomitant]

REACTIONS (5)
  - CHEST PAIN [None]
  - DYSPNOEA [None]
  - FLUID RETENTION [None]
  - GASTROOESOPHAGEAL REFLUX DISEASE [None]
  - WEIGHT INCREASED [None]
